FAERS Safety Report 7379071-9 (Version None)
Quarter: 2011Q1

REPORT INFORMATION
  Report Type: 
  Country: None (occurrence: None)
  Receive Date: 20110328
  Receipt Date: 20110315
  Transmission Date: 20110831
  Serious: Yes (Hospitalization, Other)
  Sender: FDA-Public Use
  Company Number: US-ELI_LILLY_AND_COMPANY-US201103004851

PATIENT
  Sex: Female

DRUGS (6)
  1. ALLEGRA [Concomitant]
  2. SYNTHROID [Concomitant]
  3. LIPITOR [Concomitant]
  4. WARFARIN [Concomitant]
  5. LISINOPRIL [Concomitant]
  6. FORTEO [Suspect]
     Indication: OSTEOPOROSIS
     Dosage: 20 UG, DAILY (1/D)
     Dates: start: 20101001, end: 20110301

REACTIONS (2)
  - GASTROINTESTINAL OBSTRUCTION [None]
  - DRUG DOSE OMISSION [None]
